FAERS Safety Report 7472822-4 (Version None)
Quarter: 2011Q2

REPORT INFORMATION
  Report Type: 
  Country: None (occurrence: None)
  Receive Date: 20110511
  Receipt Date: 20110426
  Transmission Date: 20111010
  Serious: Yes (Other)
  Sender: FDA-Public Use
  Company Number: US-JNJFOC-20110500263

PATIENT
  Sex: Male
  Weight: 88.45 kg

DRUGS (11)
  1. NUCYNTA [Suspect]
     Dosage: UNSPECIFIED PER DAY
     Route: 048
  2. ASPIRIN [Concomitant]
     Route: 048
  3. NUCYNTA [Suspect]
     Indication: PAIN
     Route: 048
  4. DIAZEPAM [Concomitant]
     Indication: NEUROPATHY PERIPHERAL
     Route: 048
  5. FLOMAX [Concomitant]
     Indication: PROSTATOMEGALY
     Route: 048
  6. OXYCONTIN [Concomitant]
     Indication: PAIN
     Route: 048
  7. PROZAC [Concomitant]
     Indication: NEUROPATHY PERIPHERAL
     Route: 048
  8. VITAMIN TAB [Concomitant]
     Indication: VITAMIN SUPPLEMENTATION
     Route: 048
  9. SENOKOT [Concomitant]
     Indication: ABNORMAL FAECES
     Route: 048
  10. VITAMIN D [Concomitant]
     Indication: VITAMIN SUPPLEMENTATION
     Route: 048
  11. SYNTHROID [Concomitant]
     Indication: THYROID DISORDER
     Route: 048

REACTIONS (4)
  - PROSTATOMEGALY [None]
  - NERVOUSNESS [None]
  - MUSCULOSKELETAL PAIN [None]
  - BREAST PAIN [None]
